FAERS Safety Report 8924777 (Version 6)
Quarter: 2013Q1

REPORT INFORMATION
  Report Type: Spontaneous
  Country: US (occurrence: None)
  Receive Date: 20121116
  Receipt Date: 20130122
  Transmission Date: 20140127
  Serious: Yes (Death, Life-Threatening, Hospitalization)
  Sender: FDA-Public Use
  Company Number: 2012SGN00493

PATIENT
  Age: 62 Year
  Sex: Male

DRUGS (11)
  1. BRENTUXIMAB VEDOTIN [Suspect]
     Indication: ACUTE GRAFT VERSUS HOST DISEASE
     Dosage: QCYCLE
     Route: 042
     Dates: start: 20121011, end: 20121025
  2. BACTRIM [Concomitant]
  3. ACYCLOVIR (ACYCLOVIR) [Concomitant]
  4. CEFEPIME (CEFEPIME) [Concomitant]
  5. VANCOMYCIN (VANCOMYCIN HYDROCHLORIDE) [Concomitant]
  6. VORICONAZOLE (VORICONAZOLE) [Concomitant]
  7. MICAFUNGIN (MICAFUNGIN) [Concomitant]
  8. CIPROFLOXACIN (CIPROFLOXACIN HYDROCHLORIDE) [Concomitant]
  9. TACROLIMUS (TACROLIMUS) [Concomitant]
  10. SOLUMEDROL (METHYLPREDNISOLONE SODIUM SUCCINATE) [Concomitant]
  11. FLAGYL (METRONIDAZOLE BENZOATE) [Concomitant]

REACTIONS (24)
  - Multi-organ failure [None]
  - Hypotension [None]
  - Pyrexia [None]
  - General physical health deterioration [None]
  - Muscle haemorrhage [None]
  - Septic shock [None]
  - Fungal infection [None]
  - Renal failure acute [None]
  - Gastrointestinal haemorrhage [None]
  - Intra-abdominal haemorrhage [None]
  - Haemolysis [None]
  - Pancytopenia [None]
  - Somnolence [None]
  - Hypoxia [None]
  - Pleural effusion [None]
  - Metabolic acidosis [None]
  - Respiratory failure [None]
  - Graft versus host disease [None]
  - Condition aggravated [None]
  - Frequent bowel movements [None]
  - Diffuse alveolar damage [None]
  - Neutropenia [None]
  - Bronchopulmonary aspergillosis [None]
  - Systemic candida [None]
